FAERS Safety Report 11806418 (Version 2)
Quarter: 2015Q4

REPORT INFORMATION
  Report Type: Report from Study
  Country: CO (occurrence: CO)
  Receive Date: 20151207
  Receipt Date: 20151210
  Transmission Date: 20160305
  Serious: Yes (Other)
  Sender: FDA-Public Use
  Company Number: CO-REGENERON PHARMACEUTICALS, INC.-2015-14315

PATIENT

DRUGS (1)
  1. EYLEA [Suspect]
     Active Substance: AFLIBERCEPT
     Indication: DIABETIC RETINAL OEDEMA
     Dosage: 1 DF, Q1MON
     Dates: start: 201505, end: 20151001

REACTIONS (2)
  - Cataract [Not Recovered/Not Resolved]
  - Macular cyst [Not Recovered/Not Resolved]

NARRATIVE: CASE EVENT DATE: 2015
